FAERS Safety Report 6722856-X (Version None)
Quarter: 2010Q2

REPORT INFORMATION
  Report Type: 
  Country: None (occurrence: None)
  Receive Date: 20100512
  Receipt Date: 20100512
  Transmission Date: 20101027
  Serious: No
  Sender: FDA-Public Use
  Company Number: None

PATIENT
  Sex: Female
  Weight: 59.1 kg

DRUGS (2)
  1. PROMETRIUM [Suspect]
     Indication: AUTONOMIC NERVOUS SYSTEM IMBALANCE
     Dosage: 100MG=1CAP ONCE DAILY PO
     Route: 048
     Dates: start: 20100418, end: 20100420
  2. VIVELLE-DOT [Concomitant]

REACTIONS (4)
  - DIZZINESS [None]
  - HEADACHE [None]
  - HYPOAESTHESIA ORAL [None]
  - PRODUCT QUALITY ISSUE [None]
